FAERS Safety Report 8964252 (Version 1)
Quarter: 2012Q4

REPORT INFORMATION
  Report Type: 
  Country: US (occurrence: US)
  Receive Date: 20121214
  Receipt Date: 20121214
  Transmission Date: 20130627
  Serious: No
  Sender: FDA-Public Use
  Company Number: US-GLAXOSMITHKLINE-A0951643A

PATIENT
  Age: 79 Year
  Sex: Male

DRUGS (5)
  1. AVODART [Suspect]
     Indication: BENIGN PROSTATIC HYPERPLASIA
     Dosage: 1CAP Per day
     Route: 048
     Dates: start: 2007
  2. FENOFIBRATE [Concomitant]
     Dates: start: 20111031
  3. COMBIVENT [Concomitant]
  4. ADVAIR [Concomitant]
  5. FLOMAX [Concomitant]

REACTIONS (2)
  - Pollakiuria [Recovered/Resolved]
  - Product quality issue [Unknown]
